FAERS Safety Report 4392828-1 (Version None)
Quarter: 2004Q3

REPORT INFORMATION
  Report Type: 
  Country: None (occurrence: None)
  Receive Date: 20040708
  Receipt Date: 20040615
  Transmission Date: 20050211
  Serious: Yes (Death)
  Sender: FDA-Public Use
  Company Number: PHBS2004JP08009

PATIENT
  Age: 91 Year

DRUGS (3)
  1. LAMISIL [Suspect]
     Indication: NAIL TINEA
     Dosage: 125 MG/D
     Route: 048
     Dates: start: 20040210, end: 20040512
  2. ANTIALLERGIC AGENTS, EXCL CORTICOSTEROIDS [Concomitant]
  3. HEART DISEASE TREATMENT [Concomitant]

REACTIONS (2)
  - DEATH [None]
  - ECZEMA [None]
